FAERS Safety Report 7738728-8 (Version None)
Quarter: 2011Q3

REPORT INFORMATION
  Report Type: 
  Country: None (occurrence: None)
  Receive Date: 20110908
  Receipt Date: 20110830
  Transmission Date: 20111222
  Serious: Yes (Other)
  Sender: FDA-Public Use
  Company Number: US-PFIZER INC-2010082541

PATIENT

DRUGS (10)
  1. ACIPHEX [Concomitant]
  2. WARFARIN [Concomitant]
  3. ZEGERID [Concomitant]
  4. AVAPRO [Concomitant]
  5. PROTONIX [Suspect]
     Dosage: UNK
     Route: 048
     Dates: start: 20100401
  6. PREVACID [Concomitant]
  7. ZANTAC [Concomitant]
  8. PROTONIX [Suspect]
     Dosage: UNK
     Route: 042
     Dates: start: 20100601, end: 20100601
  9. CARAFATE [Concomitant]
  10. PEPCID [Concomitant]

REACTIONS (6)
  - PRURITUS [None]
  - OESOPHAGEAL ULCER [None]
  - DYSPHAGIA [None]
  - WRONG TECHNIQUE IN DRUG USAGE PROCESS [None]
  - GENERALISED OEDEMA [None]
  - BURNING SENSATION [None]
